FAERS Safety Report 7019228-X (Version None)
Quarter: 2010Q3

REPORT INFORMATION
  Report Type: 
  Country: None (occurrence: None)
  Receive Date: 20100928
  Receipt Date: 20100920
  Transmission Date: 20110219
  Serious: Yes (Hospitalization)
  Sender: FDA-Public Use
  Company Number: NL-AMGEN-KDL439611

PATIENT
  Age: 43 Year
  Sex: Male

DRUGS (4)
  1. CINACALCET [Suspect]
     Indication: HYPERPARATHYROIDISM SECONDARY
  2. CINACALCET [Suspect]
  3. CALCIDOL [Concomitant]
  4. SEVELAMER [Concomitant]

REACTIONS (1)
  - BONE GIANT CELL TUMOUR [None]
